FAERS Safety Report 22393889 (Version 1)
Quarter: 2023Q2

REPORT INFORMATION
  Report Type: Spontaneous
  Country: CA (occurrence: CA)
  Receive Date: 20230601
  Receipt Date: 20230601
  Transmission Date: 20230722
  Serious: Yes (Other)
  Sender: FDA-Public Use
  Company Number: CA-UCBSA-2023027414

PATIENT
  Age: 9 Year
  Sex: Male

DRUGS (1)
  1. LEVETIRACETAM [Suspect]
     Active Substance: LEVETIRACETAM
     Indication: Generalised tonic-clonic seizure
     Dosage: UNK

REACTIONS (5)
  - Petit mal epilepsy [Recovered/Resolved]
  - Suicidal ideation [Unknown]
  - Depression [Recovering/Resolving]
  - Anxiety [Recovering/Resolving]
  - Migraine [Unknown]
